FAERS Safety Report 5506063-4 (Version None)
Quarter: 2007Q4

REPORT INFORMATION
  Report Type: 
  Country: None (occurrence: None)
  Receive Date: 20071102
  Receipt Date: 20071102
  Transmission Date: 20080405
  Serious: Yes (Hospitalization)
  Sender: FDA-Public Use
  Company Number: None

PATIENT
  Age: 36 Year
  Sex: Female

DRUGS (1)
  1. MORPHINE [Suspect]
     Indication: PAIN
     Dosage: 4 MG Q2-4H IV
     Route: 042
     Dates: start: 20071015, end: 20071015

REACTIONS (1)
  - RESPIRATORY DEPRESSION [None]
